FAERS Safety Report 9105407 (Version 1)
Quarter: 2013Q1

REPORT INFORMATION
  Report Type: Spontaneous
  Country: US (occurrence: US)
  Receive Date: 20130220
  Receipt Date: 20130220
  Transmission Date: 20140127
  Serious: No
  Sender: FDA-Public Use
  Company Number: US-PFIZER INC-2013059813

PATIENT
  Age: 44 Year
  Sex: Female

DRUGS (5)
  1. ZITHROMAX [Suspect]
     Dosage: UNK
  2. GUAIFENESIN [Suspect]
     Dosage: UNK
  3. COPAXONE [Suspect]
     Indication: MULTIPLE SCLEROSIS
     Dosage: 20 MG, UNK
     Dates: start: 20110308
  4. HYDROCODONE [Suspect]
     Dosage: UNK
  5. AUGMENTIN [Suspect]
     Dosage: UNK

REACTIONS (4)
  - Urticaria [Unknown]
  - Pruritus [Unknown]
  - Pyrexia [Unknown]
  - Cough [Unknown]
